FAERS Safety Report 12705152 (Version 2)
Quarter: 2016Q4

REPORT INFORMATION
  Report Type: Spontaneous
  Country: US (occurrence: US)
  Receive Date: 20160831
  Receipt Date: 20161215
  Transmission Date: 20170207
  Serious: Yes (Other)
  Sender: FDA-Public Use
  Company Number: US-TEVA-685008ACC

PATIENT
  Age: 23 Year
  Sex: Female
  Weight: 71.73 kg

DRUGS (1)
  1. PARAGARD T 380A [Suspect]
     Active Substance: COPPER
     Indication: CONTRACEPTION
     Dates: start: 20151021, end: 20160810

REACTIONS (4)
  - Device dislocation [Recovered/Resolved]
  - Pain [Unknown]
  - Pelvic pain [Recovered/Resolved]
  - Dysmenorrhoea [Recovered/Resolved]

NARRATIVE: CASE EVENT DATE: 20160302
